FAERS Safety Report 24020153 (Version 1)
Quarter: 2024Q2

REPORT INFORMATION
  Report Type: Other
  Country: AU (occurrence: AU)
  Receive Date: 20240627
  Receipt Date: 20240627
  Transmission Date: 20240716
  Serious: Yes (Other)
  Sender: FDA-Public Use
  Company Number: AU-LUPIN PHARMACEUTICALS INC.-2024-05448

PATIENT

DRUGS (1)
  1. FLUOXETINE [Suspect]
     Active Substance: FLUOXETINE HYDROCHLORIDE
     Indication: Product used for unknown indication
     Dosage: UNK
     Route: 065

REACTIONS (10)
  - Amnesia [Unknown]
  - Apathy [Unknown]
  - Cognitive disorder [Unknown]
  - Depersonalisation/derealisation disorder [Unknown]
  - Erectile dysfunction [Unknown]
  - Loss of libido [Unknown]
  - Penis disorder [Unknown]
  - Sexual dysfunction [Unknown]
  - Sleep disorder [Unknown]
  - Tardive dyskinesia [Unknown]
